FAERS Safety Report 22137611 (Version 2)
Quarter: 2025Q3

REPORT INFORMATION
  Report Type: Spontaneous
  Country: EU (occurrence: EU)
  Receive Date: 20230325
  Receipt Date: 20250807
  Transmission Date: 20251020
  Serious: Yes (Hospitalization, Other)
  Sender: AUROBINDO
  Company Number: EU-GLAXOSMITHKLINE-PT2022GSK176341

PATIENT
  Age: 47 Year
  Sex: Female

DRUGS (5)
  1. BISOPROLOL FUMARATE\HYDROCHLOROTHIAZIDE [Suspect]
     Active Substance: BISOPROLOL FUMARATE\HYDROCHLOROTHIAZIDE
     Indication: Hypertension
     Route: 065
  2. CEFUROXIME [Suspect]
     Active Substance: CEFUROXIME
     Indication: Urinary tract infection
     Dosage: 500 MILLIGRAM, TWO TIMES A DAY (RECEIVED FOUR DOSES, CUMULATIVE DOSE: 4 DOSAGE FORM )
     Route: 065
  3. SACCHAROMYCES CEREVISIAE [Concomitant]
     Active Substance: SACCHAROMYCES CEREVISIAE
     Indication: Product used for unknown indication
     Route: 065
  4. BISOPROLOL FUMARATE\HYDROCHLOROTHIAZIDE [Concomitant]
     Active Substance: BISOPROLOL FUMARATE\HYDROCHLOROTHIAZIDE
     Indication: Hypertension
     Route: 065
  5. PREDNISOLONE [Concomitant]
     Active Substance: PREDNISOLONE
     Indication: Product used for unknown indication
     Route: 065

REACTIONS (16)
  - Anal incontinence [Unknown]
  - Anaphylactic reaction [Unknown]
  - Hypersensitivity [Unknown]
  - Urinary incontinence [Unknown]
  - Type I hypersensitivity [Unknown]
  - Malaise [Unknown]
  - Rash [Unknown]
  - Diarrhoea [Unknown]
  - Swelling face [Unknown]
  - Lip oedema [Unknown]
  - Pruritus [Unknown]
  - Tongue oedema [Unknown]
  - Erythema [Unknown]
  - Throat irritation [Unknown]
  - Gastrointestinal disorder [Unknown]
  - Face oedema [Unknown]
